FAERS Safety Report 19938966 (Version 1)
Quarter: 2021Q4

REPORT INFORMATION
  Report Type: Spontaneous
  Country: US (occurrence: US)
  Receive Date: 20211011
  Receipt Date: 20211011
  Transmission Date: 20220303
  Serious: Yes (Hospitalization)
  Sender: FDA-Public Use
  Company Number: US-INSMED, INC.-2021-09365-US

PATIENT
  Age: 93 Year
  Sex: Female

DRUGS (6)
  1. ARIKAYCE [Suspect]
     Active Substance: AMIKACIN
     Indication: Mycobacterium avium complex infection
     Dosage: 590 MILLIGRAM, UNK
     Route: 055
     Dates: start: 20210728, end: 20210801
  2. ARIKAYCE [Suspect]
     Active Substance: AMIKACIN
     Dosage: 590 MILLIGRAM, MONDAY, WEDNESDAY AND FRIDAY
     Route: 055
     Dates: start: 20210804, end: 2021
  3. ETHAMBUTOL [Suspect]
     Active Substance: ETHAMBUTOL HYDROCHLORIDE
     Indication: Product used for unknown indication
     Dosage: 400 MILLIGRAM, BID
     Route: 065
  4. RIFAMPIN [Suspect]
     Active Substance: RIFAMPIN
     Indication: Product used for unknown indication
     Dosage: 300 MILLIGRAM, BID
     Route: 065
  5. AZITHROMYCIN ANHYDROUS [Suspect]
     Active Substance: AZITHROMYCIN ANHYDROUS
     Indication: Product used for unknown indication
     Dosage: 250 MILLIGRAM, QD
     Route: 065
  6. ALBUTEROL SULFATE [Suspect]
     Active Substance: ALBUTEROL SULFATE
     Indication: Product used for unknown indication
     Dosage: UNK
     Route: 055

REACTIONS (7)
  - Paraesthesia [Recovered/Resolved]
  - Peripheral swelling [Recovered/Resolved]
  - Limb discomfort [Recovered/Resolved]
  - Head discomfort [Recovered/Resolved]
  - Drug hypersensitivity [Unknown]
  - Drug intolerance [Unknown]
  - Off label use [Unknown]

NARRATIVE: CASE EVENT DATE: 20210801
